FAERS Safety Report 6816124-5 (Version None)
Quarter: 2010Q3

REPORT INFORMATION
  Report Type: 
  Country: None (occurrence: None)
  Receive Date: 20100702
  Receipt Date: 20100702
  Transmission Date: 20110219
  Serious: Yes (Hospitalization)
  Sender: FDA-Public Use
  Company Number: None

PATIENT
  Age: 83 Year
  Sex: Male
  Weight: 71.1 kg

DRUGS (1)
  1. CLADRIBINE [Suspect]
     Dosage: IV
     Route: 042

REACTIONS (1)
  - CONSTIPATION [None]
